FAERS Safety Report 9643852 (Version 1)
Quarter: 2013Q4

REPORT INFORMATION
  Report Type: Spontaneous
  Country: CN (occurrence: None)
  Receive Date: 20131023
  Receipt Date: 20131023
  Transmission Date: 20140711
  Serious: Yes (Other)
  Sender: FDA-Public Use
  Company Number: PRED20130068

PATIENT
  Age: 68 Year
  Sex: Male

DRUGS (3)
  1. PREDNISONE [Suspect]
     Indication: LANGERHANS^ CELL HISTIOCYTOSIS
     Dosage: 100MG, SIX CYCLES
     Dates: start: 200910, end: 20100423
  2. CYCLOPHOSPHAMIDE [Suspect]
     Indication: LANGERHANS^ CELL HISTIOCYTOSIS
     Dosage: 750MG, SIX CYCLES
     Dates: start: 200910, end: 20100423
  3. VINCRISTINE [Suspect]
     Indication: LANGERHANS^ CELL HISTIOCYTOSIS
     Dosage: 1.4MG, SIX CYCLES
     Dates: start: 200910, end: 20100423

REACTIONS (3)
  - Bone marrow failure [None]
  - Mass [None]
  - Disease recurrence [None]
